FAERS Safety Report 6063930-3 (Version None)
Quarter: 2009Q1

REPORT INFORMATION
  Report Type: 
  Country: None (occurrence: None)
  Receive Date: 20090204
  Receipt Date: 20090126
  Transmission Date: 20090719
  Serious: Yes (Hospitalization)
  Sender: FDA-Public Use
  Company Number: PHHY2008JP30604

PATIENT
  Sex: Male

DRUGS (6)
  1. TEGRETOL [Suspect]
     Indication: MIGRAINE
     Dosage: 100 MG DAILY
     Route: 048
     Dates: start: 20081009, end: 20081106
  2. CYANOCOBALAMIN [Concomitant]
     Indication: MIGRAINE
     Dosage: 1500 UG, UNK
     Route: 048
     Dates: start: 20080717, end: 20081125
  3. SERENAL [Concomitant]
     Indication: MIGRAINE
     Dosage: 30 MG, UNK
     Route: 048
     Dates: start: 20080717, end: 20081125
  4. LOXONIN [Concomitant]
     Indication: MIGRAINE
     Dosage: 180 MG, UNK
     Route: 048
     Dates: start: 20080717, end: 20081125
  5. DEPAKENE [Concomitant]
     Indication: MIGRAINE
     Dosage: 200 MG, UNK
     Route: 048
     Dates: start: 20081106, end: 20081125
  6. AMLODIPINE [Concomitant]
     Indication: MIGRAINE
     Dosage: 5 MG, UNK
     Route: 048
     Dates: start: 20081106, end: 20081125

REACTIONS (10)
  - ANOREXIA [None]
  - DRUG ERUPTION [None]
  - DRUG INEFFECTIVE [None]
  - DRUG RASH WITH EOSINOPHILIA AND SYSTEMIC SYMPTOMS [None]
  - MEASLES [None]
  - MONOCYTE COUNT INCREASED [None]
  - PYREXIA [None]
  - RASH [None]
  - VIRAL INFECTION [None]
  - VIRAL SKIN INFECTION [None]
